FAERS Safety Report 13471475 (Version 1)
Quarter: 2017Q2

REPORT INFORMATION
  Report Type: Spontaneous
  Country: US (occurrence: US)
  Receive Date: 20170421
  Receipt Date: 20170421
  Transmission Date: 20170830
  Serious: No
  Sender: FDA-Public Use
  Company Number: None

PATIENT
  Sex: Female

DRUGS (1)
  1. GILENYA [Suspect]
     Active Substance: FINGOLIMOD HYDROCHLORIDE
     Indication: MULTIPLE SCLEROSIS
     Dosage: 0.5MG EVERY OTHER DAY ORAL
     Route: 048
     Dates: start: 2012

REACTIONS (3)
  - Chest pain [None]
  - Musculoskeletal pain [None]
  - Dyspnoea [None]
